FAERS Safety Report 6449636-7 (Version None)
Quarter: 2009Q4

REPORT INFORMATION
  Report Type: 
  Country: None (occurrence: None)
  Receive Date: 20091120
  Receipt Date: 20091117
  Transmission Date: 20100525
  Serious: Yes (Life-Threatening)
  Sender: FDA-Public Use
  Company Number: FR-BAXTER-2009BH017695

PATIENT
  Age: 48 Year
  Sex: Male

DRUGS (4)
  1. ENDOXAN BAXTER [Suspect]
     Indication: BURKITT'S LYMPHOMA
     Route: 042
     Dates: start: 20090425, end: 20090427
  2. DOXORUBICIN HYDROCHLORIDE [Suspect]
     Indication: BURKITT'S LYMPHOMA
     Route: 042
     Dates: start: 20090425, end: 20090425
  3. RITUXIMAB [Suspect]
     Indication: BURKITT'S LYMPHOMA
     Route: 042
     Dates: start: 20090423, end: 20090423
  4. VINCRISTINE SULFATE GENERIC [Suspect]
     Indication: BURKITT'S LYMPHOMA
     Route: 065
     Dates: start: 20090424, end: 20090424

REACTIONS (3)
  - INJECTION SITE INFLAMMATION [None]
  - MUSCULOSKELETAL PAIN [None]
  - PYREXIA [None]
